FAERS Safety Report 5356648-3 (Version None)
Quarter: 2007Q2

REPORT INFORMATION
  Report Type: 
  Country: None (occurrence: None)
  Receive Date: 20070612
  Receipt Date: 20070612
  Transmission Date: 20071010
  Serious: Yes (Other)
  Sender: FDA-Public Use
  Company Number: None

PATIENT
  Age: 49 Year
  Sex: Female
  Weight: 65.7716 kg

DRUGS (1)
  1. VIVAGLOBIN [Suspect]
     Indication: ANTIBODY TEST ABNORMAL
     Dosage: 25 CC TWICE/WK SQ
     Route: 058
     Dates: start: 20070326, end: 20070510

REACTIONS (4)
  - CONTUSION [None]
  - ERYTHEMA [None]
  - INFUSION RELATED REACTION [None]
  - TENDERNESS [None]
